FAERS Safety Report 23456486 (Version 3)
Quarter: 2024Q1

REPORT INFORMATION
  Report Type: Spontaneous
  Country: US (occurrence: US)
  Receive Date: 20240130
  Receipt Date: 20240307
  Transmission Date: 20240409
  Serious: No
  Sender: FDA-Public Use
  Company Number: US-PFIZER INC-202400013804

PATIENT
  Age: 16 Year
  Sex: Male
  Weight: 58.06 kg

DRUGS (1)
  1. GENOTROPIN [Suspect]
     Active Substance: SOMATROPIN
     Indication: Growth hormone deficiency
     Dosage: 2.2 MG (INJECT ONCE NIGHT EITHER THIGHS, BUTTOCKS OR THE STOMACH)
     Dates: start: 20231110

REACTIONS (6)
  - Drug dose omission by device [Unknown]
  - Device information output issue [Unknown]
  - Device delivery system issue [Unknown]
  - Device malfunction [Unknown]
  - Device mechanical issue [Unknown]
  - Device leakage [Unknown]

NARRATIVE: CASE EVENT DATE: 20240110
